FAERS Safety Report 8812436 (Version 1)
Quarter: 2012Q4

REPORT INFORMATION
  Report Type: 
  Country: CN (occurrence: CN)
  Receive Date: 20120927
  Receipt Date: 20120927
  Transmission Date: 20130627
  Serious: Yes (Other)
  Sender: FDA-Public Use
  Company Number: CN-ROCHE-1125120

PATIENT
  Age: 5 Year
  Sex: Male
  Weight: 20.5 kg

DRUGS (6)
  1. ROCEPHIN [Suspect]
     Indication: CENTRAL NERVOUS SYSTEM INFECTION
     Route: 041
     Dates: start: 20110425, end: 20110516
  2. NAPROXEN [Suspect]
     Indication: PYREXIA
     Route: 048
     Dates: start: 20110512, end: 20110515
  3. PENICILLIN [Suspect]
     Indication: CENTRAL NERVOUS SYSTEM INFECTION
     Dosage: unit: 10,000U
     Route: 041
     Dates: start: 20110425, end: 20110516
  4. ACYCLOVIR [Suspect]
     Indication: CENTRAL NERVOUS SYSTEM INFECTION
     Route: 041
     Dates: start: 20110429, end: 20110516
  5. MANNITOL [Concomitant]
     Route: 065
  6. MONOSIALOTETRAHEXOSYLGANGLIOSIDE SODIUM [Concomitant]
     Route: 065

REACTIONS (1)
  - Granulocytopenia [Recovering/Resolving]
